FAERS Safety Report 21058254 (Version 1)
Quarter: 2022Q3

REPORT INFORMATION
  Report Type: Spontaneous
  Country: US (occurrence: None)
  Receive Date: 20220708
  Receipt Date: 20220708
  Transmission Date: 20221027
  Serious: Yes (Life-Threatening, Other)
  Sender: FDA-Public Use
  Company Number: None

PATIENT
  Age: 63 Year
  Sex: Male
  Weight: 87.75 kg

DRUGS (3)
  1. LANTUS [Suspect]
     Active Substance: INSULIN GLARGINE
     Indication: Type 2 diabetes mellitus
     Dosage: FREQUENCY : AT BEDTIME;?OTHER ROUTE : INJECTION IN STOMACH MUSCLE.;?
     Route: 050
  2. ALEVE PM [Suspect]
     Active Substance: DIPHENHYDRAMINE HYDROCHLORIDE\NAPROXEN SODIUM
     Indication: Back pain
     Dosage: FREQUENCY : AT BEDTIME;?
     Route: 048
  3. LANTUS [Concomitant]
     Active Substance: INSULIN GLARGINE

REACTIONS (8)
  - Drug interaction [None]
  - Blood glucose decreased [None]
  - Hyperhidrosis [None]
  - Nervousness [None]
  - Tremor [None]
  - Somnolence [None]
  - Extra dose administered [None]
  - Fall [None]

NARRATIVE: CASE EVENT DATE: 20170215
